FAERS Safety Report 18321124 (Version 1)
Quarter: 2020Q3

REPORT INFORMATION
  Report Type: Report from Study
  Country: None (occurrence: US)
  Receive Date: 20200929
  Receipt Date: 20200929
  Transmission Date: 20201103
  Serious: Yes (Other)
  Sender: FDA-Public Use
  Company Number: US-ABBVIE-20K-163-3580726-00

PATIENT
  Age: 49 Year
  Sex: Male
  Weight: 73.55 kg

DRUGS (1)
  1. HUMIRA [Suspect]
     Active Substance: ADALIMUMAB
     Indication: CROHN^S DISEASE
     Route: 058

REACTIONS (9)
  - Injection site bruising [Recovering/Resolving]
  - Musculoskeletal discomfort [Recovered/Resolved]
  - Pyrexia [Recovered/Resolved]
  - SARS-CoV-2 test positive [Recovering/Resolving]
  - Injection site discolouration [Unknown]
  - Injection site papule [Unknown]
  - Chest discomfort [Recovered/Resolved]
  - Injection site swelling [Unknown]
  - Injection site haemorrhage [Recovered/Resolved]

NARRATIVE: CASE EVENT DATE: 20200903
